FAERS Safety Report 9569542 (Version 2)
Quarter: 2013Q3

REPORT INFORMATION
  Report Type: Spontaneous
  Country: US (occurrence: US)
  Receive Date: 20130930
  Receipt Date: 20130930
  Transmission Date: 20140515
  Serious: No
  Sender: FDA-Public Use
  Company Number: US-AMGEN-USASP2013065382

PATIENT
  Age: 47 Year
  Sex: Female
  Weight: 90.7 kg

DRUGS (6)
  1. ENBREL [Suspect]
     Indication: PSORIATIC ARTHROPATHY
     Dosage: 50 MG, QWK
     Route: 065
     Dates: start: 20130828
  2. ACIPHEX [Concomitant]
     Dosage: 20 MG, UNK
  3. B COMPLEX                          /00212701/ [Concomitant]
     Dosage: UNK
  4. VITAMIN C                          /00008001/ [Concomitant]
     Dosage: 500 MG, UNK
  5. VITAMIN D                          /00107901/ [Concomitant]
     Dosage: 1000 UNIT, UNK
  6. CALCIUM CITRATE [Concomitant]
     Dosage: 200 MG, UNK

REACTIONS (10)
  - Arthralgia [Unknown]
  - Arthritis [Unknown]
  - Pain in extremity [Unknown]
  - Inflammation [Unknown]
  - Injection site swelling [Not Recovered/Not Resolved]
  - Injection site reaction [Not Recovered/Not Resolved]
  - Injection site erythema [Not Recovered/Not Resolved]
  - Injection site pruritus [Not Recovered/Not Resolved]
  - Injection site pain [Not Recovered/Not Resolved]
  - Injection site warmth [Not Recovered/Not Resolved]
